FAERS Safety Report 4394542-5 (Version None)
Quarter: 2004Q3

REPORT INFORMATION
  Report Type: 
  Country: None (occurrence: None)
  Receive Date: 20040709
  Receipt Date: 20040709
  Transmission Date: 20050211
  Serious: Yes (Other)
  Sender: FDA-Public Use
  Company Number: None

PATIENT
  Age: 38 Year
  Sex: Female
  Weight: 80.7403 kg

DRUGS (1)
  1. LEXAPRO [Suspect]
     Indication: DEPRESSION
     Dosage: 1/2 TABLET DAILY ORAL
     Route: 048
     Dates: start: 20040703, end: 20040706

REACTIONS (8)
  - ANXIETY [None]
  - DISTURBANCE IN ATTENTION [None]
  - FEAR [None]
  - FEELING ABNORMAL [None]
  - FEELING OF DESPAIR [None]
  - HEADACHE [None]
  - INSOMNIA [None]
  - MORBID THOUGHTS [None]
